FAERS Safety Report 14379995 (Version 1)
Quarter: 2018Q1

REPORT INFORMATION
  Report Type: Spontaneous
  Country: US (occurrence: US)
  Receive Date: 20180111
  Receipt Date: 20180111
  Transmission Date: 20180509
  Serious: Yes (Other)
  Sender: FDA-Public Use
  Company Number: None

PATIENT
  Sex: Female
  Weight: 108.86 kg

DRUGS (2)
  1. IRON [Concomitant]
     Active Substance: IRON
  2. MIRENA [Suspect]
     Active Substance: LEVONORGESTREL
     Dates: start: 20160621, end: 20171031

REACTIONS (10)
  - Neck pain [None]
  - Mood swings [None]
  - Musculoskeletal stiffness [None]
  - Depression [None]
  - Weight increased [None]
  - Pain in extremity [None]
  - Migraine [None]
  - Hypoaesthesia [None]
  - Paraesthesia [None]
  - Libido decreased [None]

NARRATIVE: CASE EVENT DATE: 20171014
